FAERS Safety Report 4962665-5 (Version None)
Quarter: 2006Q1

REPORT INFORMATION
  Report Type: 
  Country: None (occurrence: None)
  Receive Date: 20060201
  Receipt Date: 20051102
  Transmission Date: 20060701
  Serious: No
  Sender: FDA-Public Use
  Company Number: 2005PV004035

PATIENT
  Age: 78 Year
  Sex: Male

DRUGS (10)
  1. BYETTA [Suspect]
     Indication: DIABETES MELLITUS NON-INSULIN-DEPENDENT
     Dosage: 10  MCG; BID; SC
     Route: 058
     Dates: start: 20051101
  2. AMARYL [Concomitant]
  3. LANTUS [Concomitant]
  4. GLUCOPHAGE ^BRISTOL-MYERS SQUIB^ [Concomitant]
  5. M [Concomitant]
  6. .. [Concomitant]
  7. .. [Concomitant]
  8. . [Concomitant]
  9. .. [Concomitant]
  10. . [Concomitant]

REACTIONS (5)
  - FREQUENT BOWEL MOVEMENTS [None]
  - MEDICATION ERROR [None]
  - NAUSEA [None]
  - POLLAKIURIA [None]
  - VOMITING [None]
